FAERS Safety Report 17119832 (Version 1)
Quarter: 2019Q4

REPORT INFORMATION
  Report Type: Spontaneous
  Country: US (occurrence: US)
  Receive Date: 20191113
  Receipt Date: 20191113
  Transmission Date: 20200122
  Serious: Yes (Death)
  Sender: FDA-Public Use
  Company Number: None

PATIENT
  Sex: Female

DRUGS (12)
  1. LISINOPRIL AND HYDROCHLOROTHIAZIDE [Concomitant]
     Active Substance: HYDROCHLOROTHIAZIDE\LISINOPRIL
  2. PAROXETINE. [Concomitant]
     Active Substance: PAROXETINE
  3. GAPBAPENTIN [Concomitant]
  4. ZOLPIDEM [Concomitant]
     Active Substance: ZOLPIDEM TARTRATE
  5. LEVETIRACTETA [Concomitant]
  6. PANTOPRAZOLE [Concomitant]
     Active Substance: PANTOPRAZOLE
  7. TEMOZOLOMIDE 180MG [Suspect]
     Active Substance: TEMOZOLOMIDE
     Dosage: ?          OTHER FREQUENCY:DAYS 1-5;?
     Route: 048
     Dates: start: 20190205
  8. FAMCICLOVIR. [Concomitant]
     Active Substance: FAMCICLOVIR
  9. LISINOPRIL. [Concomitant]
     Active Substance: LISINOPRIL
  10. QUETIAPINE. [Concomitant]
     Active Substance: QUETIAPINE
  11. TEMOZOLOMIDE 100MG [Suspect]
     Active Substance: TEMOZOLOMIDE
     Indication: NEOPLASM MALIGNANT
     Dosage: ?          OTHER FREQUENCY:DAYS 1-5;?
     Route: 048
     Dates: start: 20190205
  12. AMLODIPINE [Concomitant]
     Active Substance: AMLODIPINE BESYLATE

REACTIONS (1)
  - Death [None]
